FAERS Safety Report 19978805 (Version 1)
Quarter: 2021Q4

REPORT INFORMATION
  Report Type: Spontaneous
  Country: US (occurrence: US)
  Receive Date: 20211019
  Receipt Date: 20211019
  Transmission Date: 20220303
  Serious: No
  Sender: FDA-Public Use
  Company Number: None

PATIENT
  Sex: Female

DRUGS (4)
  1. VYNDAMAX [Suspect]
     Active Substance: TAFAMIDIS
     Indication: Type 2 diabetes mellitus
     Route: 048
     Dates: start: 20200901
  2. VYNDAMAX [Suspect]
     Active Substance: TAFAMIDIS
     Indication: Pain
  3. VYNDAMAX [Suspect]
     Active Substance: TAFAMIDIS
     Indication: Hypovitaminosis
  4. VYNDAMAX [Suspect]
     Active Substance: TAFAMIDIS
     Indication: Fungal infection

REACTIONS (1)
  - Hospitalisation [None]
